FAERS Safety Report 5780842-0 (Version None)
Quarter: 2008Q2

REPORT INFORMATION
  Report Type: 
  Country: None (occurrence: None)
  Receive Date: 20080620
  Receipt Date: 20080612
  Transmission Date: 20081010
  Serious: Yes (Other)
  Sender: FDA-Public Use
  Company Number: US-PFIZER INC-2007095446

PATIENT
  Sex: Female

DRUGS (2)
  1. CHANTIX [Suspect]
  2. LEXAPRO [Concomitant]

REACTIONS (11)
  - ACTIVITIES OF DAILY LIVING IMPAIRED [None]
  - ASTHMA [None]
  - BRONCHITIS [None]
  - CHRONIC OBSTRUCTIVE PULMONARY DISEASE [None]
  - GAIT DISTURBANCE [None]
  - HYPERVENTILATION [None]
  - INFECTION [None]
  - INFLAMMATION [None]
  - PYREXIA [None]
  - SURGERY [None]
  - WEIGHT INCREASED [None]
